FAERS Safety Report 22295049 (Version 1)
Quarter: 2023Q2

REPORT INFORMATION
  Report Type: Spontaneous
  Country: US (occurrence: US)
  Receive Date: 20230508
  Receipt Date: 20230508
  Transmission Date: 20230721
  Serious: No
  Sender: FDA-Public Use
  Company Number: US-ABBVIE-4754853

PATIENT
  Sex: Male

DRUGS (2)
  1. LUPRON [Suspect]
     Active Substance: LEUPROLIDE ACETATE
     Indication: Prostate cancer
     Dosage: 22.5 MG
     Route: 065
  2. ENZALUTAMIDE [Suspect]
     Active Substance: ENZALUTAMIDE
     Indication: Prostate cancer
     Dosage: 160 MG
     Route: 065
     Dates: start: 20210513

REACTIONS (8)
  - Abnormal faeces [Unknown]
  - Urine odour abnormal [Unknown]
  - Pain [Unknown]
  - Musculoskeletal stiffness [Unknown]
  - Hot flush [Unknown]
  - Arthralgia [Unknown]
  - Myalgia [Unknown]
  - Dry mouth [Unknown]
